FAERS Safety Report 6274022-2 (Version None)
Quarter: 2009Q3

REPORT INFORMATION
  Report Type: 
  Country: None (occurrence: None)
  Receive Date: 20090720
  Receipt Date: 20090713
  Transmission Date: 20100115
  Serious: Yes (Other)
  Sender: FDA-Public Use
  Company Number: BR-ASTRAZENECA-2009UW19782

PATIENT
  Age: 28 Year
  Sex: Female

DRUGS (10)
  1. NEXIUM [Suspect]
     Route: 048
     Dates: start: 20090710
  2. BEROTEC [Concomitant]
     Dates: start: 19950101
  3. AMINOPHYLLINE [Concomitant]
     Route: 042
     Dates: start: 20050101
  4. METICORTEN [Concomitant]
     Route: 030
     Dates: start: 20050101
  5. CAPTOPRIL [Concomitant]
     Dates: start: 19960101
  6. TOFRANIL [Concomitant]
     Indication: DEPRESSION
     Dates: start: 20010101
  7. AMITRIPTYLINE [Concomitant]
     Indication: DEPRESSION
     Dates: start: 20010101
  8. CLONAZEPAM [Concomitant]
     Dates: start: 20010101
  9. DECADRON [Concomitant]
     Dates: start: 19960101
  10. FERROUS SULFATE TAB [Concomitant]
     Indication: ANAEMIA
     Route: 042
     Dates: start: 20090101

REACTIONS (1)
  - HAEMATEMESIS [None]
